FAERS Safety Report 6156828-3 (Version None)
Quarter: 2009Q2

REPORT INFORMATION
  Report Type: 
  Country: None (occurrence: None)
  Receive Date: 20090413
  Receipt Date: 20090114
  Transmission Date: 20091009
  Serious: No
  Sender: FDA-Public Use
  Company Number: 2009BM000002

PATIENT
  Age: 10 Year
  Sex: Female

DRUGS (1)
  1. KUVAN [Suspect]
     Indication: PHENYLKETONURIA
     Dosage: 20 MG/KG;QD;PO
     Route: 048
     Dates: start: 20081101

REACTIONS (1)
  - VOMITING [None]
